FAERS Safety Report 5398906-2 (Version None)
Quarter: 2007Q3

REPORT INFORMATION
  Report Type: 
  Country: None (occurrence: None)
  Receive Date: 20070727
  Receipt Date: 20070723
  Transmission Date: 20080115
  Serious: Yes (Other)
  Sender: FDA-Public Use
  Company Number: US-JNJFOC-20070705032

PATIENT
  Age: 92 Year
  Sex: Male
  Weight: 54.43 kg

DRUGS (4)
  1. EXTRA STRENGTH TYLENOL [Suspect]
     Route: 048
  2. EXTRA STRENGTH TYLENOL [Suspect]
     Indication: DRUG USE FOR UNKNOWN INDICATION
     Dosage: DOSE UNKNOWN
     Route: 048
  3. EXTRA STRENGTH TYLENOL [Suspect]
     Indication: INSOMNIA
     Dosage: 2 CAPLETS AT HOUR OF SLEEP, THEN AN ADDITIONAL 2 AS NEEDED
  4. BREATHING TREATMENTS [Concomitant]

REACTIONS (8)
  - ASTHENIA [None]
  - DEPENDENCE [None]
  - DRUG ADMINISTRATION ERROR [None]
  - FEELING COLD [None]
  - HYPERSOMNIA [None]
  - INCORRECT DOSE ADMINISTERED [None]
  - PYREXIA [None]
  - TREMOR [None]
